FAERS Safety Report 9694452 (Version 1)
Quarter: 2013Q4

REPORT INFORMATION
  Report Type: Spontaneous
  Country: US (occurrence: US)
  Receive Date: 20131118
  Receipt Date: 20131118
  Transmission Date: 20140711
  Serious: No
  Sender: FDA-Public Use
  Company Number: US-PFIZER INC-2013328385

PATIENT
  Sex: Female

DRUGS (1)
  1. PREMARIN [Suspect]
     Indication: VAGINAL INFECTION
     Dosage: UNK
     Route: 067

REACTIONS (2)
  - Pelvic pain [Unknown]
  - Intentional drug misuse [Unknown]
